FAERS Safety Report 5291105-4 (Version None)
Quarter: 2007Q2

REPORT INFORMATION
  Report Type: 
  Country: None (occurrence: None)
  Receive Date: 20070402
  Receipt Date: 20070328
  Transmission Date: 20071010
  Serious: Yes (Death)
  Sender: FDA-Public Use
  Company Number: 236006

PATIENT
  Age: 57 Year
  Sex: Female

DRUGS (7)
  1. GRTPA (ALTEPLASE) PWDR + SOLVENT, INFUSION SOLN [Suspect]
     Indication: CEREBRAL INFARCTION
     Dosage: 29 ML SINGLE INTRAVENOUS
     Route: 042
     Dates: start: 20060919, end: 20060919
  2. LACTATED RINGER'S (RINGER'S INJECTION, LACTATED) [Concomitant]
  3. ARGATROBAN (ARGATROBAN) [Concomitant]
  4. DOPAMINE HYDROCHLORIDE [Concomitant]
  5. PIPERACILLIN (PIPERACILLIN SODIUM) [Concomitant]
  6. RADICUT(EDARAVONE) [Concomitant]
  7. ISOTONIC SOLUTION(ISOTONIC SOLUTION NOS) [Concomitant]

REACTIONS (10)
  - BLOOD GLUCOSE INCREASED [None]
  - BLOOD PRESSURE DECREASED [None]
  - BRAIN STEM INFARCTION [None]
  - DEPRESSED LEVEL OF CONSCIOUSNESS [None]
  - HAEMATOCRIT DECREASED [None]
  - HEMIPLEGIA [None]
  - INTERNATIONAL NORMALISED RATIO DECREASED [None]
  - PLATELET COUNT DECREASED [None]
  - PNEUMONIA [None]
  - RESPIRATORY ARREST [None]
